FAERS Safety Report 23481428 (Version 1)
Quarter: 2024Q1

REPORT INFORMATION
  Report Type: Other
  Country: FR (occurrence: None)
  Receive Date: 20240205
  Receipt Date: 20240205
  Transmission Date: 20240410
  Serious: Yes (Death, Other)
  Sender: FDA-Public Use
  Company Number: FR-ROCHE-3501072

PATIENT

DRUGS (3)
  1. RITUXIMAB [Suspect]
     Active Substance: RITUXIMAB
     Indication: Pemphigus
     Dosage: AT DAY 0 AND DAY 14
     Route: 041
  2. RITUXIMAB [Suspect]
     Active Substance: RITUXIMAB
     Dosage: AT MONTHS 12 AND 18
     Route: 041
  3. PREDNISONE [Suspect]
     Active Substance: PREDNISONE
     Indication: Pemphigus
     Route: 065

REACTIONS (22)
  - Cerebrovascular accident [Fatal]
  - Sepsis [Unknown]
  - Arthritis bacterial [Unknown]
  - Intervertebral discitis [Unknown]
  - Myocardial infarction [Unknown]
  - Pulmonary embolism [Unknown]
  - Cardiac failure [Unknown]
  - Ear neoplasm malignant [Unknown]
  - Pneumonia [Unknown]
  - Urinary tract infection [Unknown]
  - Herpes virus infection [Unknown]
  - Chorioretinitis [Unknown]
  - Angina pectoris [Unknown]
  - Thrombosis [Unknown]
  - Musculoskeletal disorder [Unknown]
  - Diabetes mellitus [Unknown]
  - Endocrine disorder [Unknown]
  - Mental disorder [Unknown]
  - Hypokalaemia [Unknown]
  - Neutropenia [Unknown]
  - Hepatic cytolysis [Unknown]
  - Skin atrophy [Unknown]
